FAERS Safety Report 10216771 (Version 2)
Quarter: 2014Q2

REPORT INFORMATION
  Report Type: Spontaneous
  Country: IT (occurrence: IT)
  Receive Date: 20140604
  Receipt Date: 20140604
  Transmission Date: 20141212
  Serious: Yes (Other)
  Sender: FDA-Public Use
  Company Number: IT-PFIZER INC-2014148343

PATIENT
  Age: 83 Year
  Sex: Male

DRUGS (8)
  1. AMIODARONE HCL [Suspect]
     Indication: ATRIAL FIBRILLATION
     Dosage: 200 MG, DAILY
     Route: 048
     Dates: start: 20140101, end: 20140404
  2. LASIX [Suspect]
     Indication: HYPERTENSION
     Dosage: 1 DF, DAILY
     Route: 048
     Dates: start: 20140101, end: 20140404
  3. PLAVIX [Concomitant]
     Dosage: UNK
  4. TRIATEC [Concomitant]
     Dosage: UNK
  5. CARDIOASPIRIN [Concomitant]
     Dosage: UNK
  6. ZYLORIC [Concomitant]
     Dosage: UNK
  7. TORVAST [Concomitant]
     Dosage: UNK
  8. PEPTAZOL [Concomitant]
     Dosage: UNK

REACTIONS (5)
  - Orthostatic hypotension [Recovering/Resolving]
  - Syncope [Recovering/Resolving]
  - Palpitations [Recovering/Resolving]
  - Sense of oppression [Recovering/Resolving]
  - Throat tightness [Recovering/Resolving]
